FAERS Safety Report 4640367-2 (Version None)
Quarter: 2005Q2

REPORT INFORMATION
  Report Type: 
  Country: None (occurrence: None)
  Receive Date: 20050420
  Receipt Date: 20041228
  Transmission Date: 20051028
  Serious: No
  Sender: FDA-Public Use
  Company Number: US-GLAXOSMITHKLINE-A0538574A

PATIENT
  Sex: Male

DRUGS (1)
  1. ESKALITH [Suspect]
     Dates: start: 19800101

REACTIONS (1)
  - RENAL IMPAIRMENT [None]
